FAERS Safety Report 4430223-7 (Version None)
Quarter: 2004Q3

REPORT INFORMATION
  Report Type: 
  Country: None (occurrence: None)
  Receive Date: 20040819
  Receipt Date: 20040819
  Transmission Date: 20050211
  Serious: Yes (Death, Life-Threatening, Hospitalization, Disabling)
  Sender: FDA-Public Use
  Company Number: None

PATIENT
  Sex: Female
  Weight: 90 kg

DRUGS (1)
  1. DEPAKOTE [Suspect]
     Indication: BIPOLAR DISORDER
     Dosage: 250 MG TID ORAL
     Route: 048
     Dates: start: 20030801, end: 20030901

REACTIONS (2)
  - GASTROINTESTINAL HAEMORRHAGE [None]
  - PANCREATITIS [None]
